FAERS Safety Report 22097687 (Version 3)
Quarter: 2025Q2

REPORT INFORMATION
  Report Type: Spontaneous
  Country: US (occurrence: US)
  Receive Date: 20230315
  Receipt Date: 20250407
  Transmission Date: 20250716
  Serious: Yes (Death, Hospitalization, Other)
  Sender: PFIZER
  Company Number: US-PFIZER INC-PV202300046635

PATIENT
  Age: 71 Year
  Sex: Female

DRUGS (3)
  1. PAXLOVID [Interacting]
     Active Substance: NIRMATRELVIR\RITONAVIR
     Indication: COVID-19
  2. VERAPAMIL HCL [Interacting]
     Active Substance: VERAPAMIL HYDROCHLORIDE
  3. NADOLOL [Concomitant]
     Active Substance: NADOLOL

REACTIONS (4)
  - Cardiogenic shock [Fatal]
  - Drug interaction [Fatal]
  - Toxicity to various agents [Fatal]
  - Bradycardia [Unknown]
